FAERS Safety Report 8582515-8 (Version None)
Quarter: 2012Q3

REPORT INFORMATION
  Report Type: 
  Country: None (occurrence: None)
  Receive Date: 20120809
  Receipt Date: 20120730
  Transmission Date: 20120928
  Serious: Yes (Other)
  Sender: FDA-Public Use
  Company Number: GB-ROCHE-1093298

PATIENT
  Sex: Female
  Weight: 65.2 kg

DRUGS (13)
  1. MABTHERA [Suspect]
     Route: 058
     Dates: start: 20120126
  2. MABTHERA [Suspect]
     Route: 058
     Dates: start: 20120419
  3. MABTHERA [Suspect]
     Route: 058
     Dates: start: 20120216
  4. MABTHERA [Suspect]
     Route: 058
     Dates: start: 20120308
  5. AMOXICILLIN AND CLAVULANATE POTASSIUM [Concomitant]
     Indication: SINUSITIS
     Dates: start: 20120220, end: 20120304
  6. MABTHERA [Suspect]
     Route: 058
     Dates: start: 20120516
  7. MABTHERA [Suspect]
     Route: 058
     Dates: start: 20120607
  8. MABTHERA [Suspect]
     Route: 058
     Dates: start: 20120329
  9. ACETAMINOPHEN [Concomitant]
     Indication: TENDONITIS
     Dates: start: 20120305, end: 20120626
  10. IBUPROFEN [Concomitant]
     Indication: TENDONITIS
     Dates: start: 20120305, end: 20120626
  11. DOXYCYCLINE HCL [Concomitant]
     Indication: SINUSITIS
     Dates: start: 20120221, end: 20120319
  12. CLARITHROMYCIN [Concomitant]
     Indication: SINUS DISORDER
     Dates: start: 20120419, end: 20120531
  13. MABTHERA [Suspect]
     Indication: B-CELL LYMPHOMA
     Route: 042
     Dates: start: 20120105

REACTIONS (1)
  - ADVERSE DRUG REACTION [None]
